FAERS Safety Report 4386878-9 (Version None)
Quarter: 2004Q2

REPORT INFORMATION
  Report Type: 
  Country: None (occurrence: None)
  Receive Date: 20040630
  Receipt Date: 20040621
  Transmission Date: 20050107
  Serious: Yes (Hospitalization, Other)
  Sender: FDA-Public Use
  Company Number: US-BRISTOL-MYERS SQUIBB COMPANY-12619888

PATIENT
  Age: 71 Year
  Sex: Female

DRUGS (6)
  1. CARBOPLATIN [Suspect]
     Indication: OVARIAN CANCER
     Route: 042
     Dates: start: 20030910, end: 20030910
  2. PACLITAXEL [Suspect]
     Indication: OVARIAN CANCER
     Route: 042
     Dates: start: 20030910, end: 20030910
  3. ZANTAC [Concomitant]
     Dates: start: 20030101
  4. ZOCOR [Concomitant]
     Dates: start: 20000101
  5. AMITRIPTYLINE HCL [Concomitant]
     Dates: start: 19930101
  6. COUMADIN [Concomitant]
     Dates: start: 20031010

REACTIONS (4)
  - ANAEMIA [None]
  - DEEP VEIN THROMBOSIS [None]
  - NEUTROPENIA [None]
  - THROMBOCYTOPENIA [None]
